FAERS Safety Report 5697844-5 (Version None)
Quarter: 2008Q2

REPORT INFORMATION
  Report Type: 
  Country: None (occurrence: None)
  Receive Date: 20080404
  Receipt Date: 20080404
  Transmission Date: 20081010
  Serious: Yes (Other)
  Sender: FDA-Public Use
  Company Number: None

PATIENT
  Sex: Female
  Weight: 74.8435 kg

DRUGS (2)
  1. ARAVA [Suspect]
     Indication: RHEUMATOID ARTHRITIS
     Dosage: 100 MG QD X 3 DAYS PO
     Route: 048
  2. ARAVA [Suspect]
     Dosage: 10 MG QD X 2 DAYS PO
     Route: 048

REACTIONS (8)
  - ABDOMINAL PAIN UPPER [None]
  - CHILLS [None]
  - DYSGEUSIA [None]
  - HEADACHE [None]
  - PAIN IN EXTREMITY [None]
  - PHARYNGOLARYNGEAL PAIN [None]
  - PYREXIA [None]
  - STEVENS-JOHNSON SYNDROME [None]
